FAERS Safety Report 4606598-2 (Version None)
Quarter: 2005Q2

REPORT INFORMATION
  Report Type: 
  Country: None (occurrence: None)
  Receive Date: 20050223
  Receipt Date: 20040518
  Transmission Date: 20051028
  Serious: Yes (Other)
  Sender: FDA-Public Use
  Company Number: WAES 0405USA01438

PATIENT
  Age: 53 Year
  Sex: Male

DRUGS (11)
  1. ZOCOR [Suspect]
     Indication: HYPERLIPIDAEMIA
     Dosage: 40 MG/DAILY/PO
     Route: 048
     Dates: start: 20040114
  2. SANDIMMUNE [Suspect]
     Dosage: 50 MG/BID/PO
     Route: 048
  3. LIPITOR [Concomitant]
  4. ASPIRIN [Concomitant]
  5. ATENOLOL [Concomitant]
  6. AZATHIOPRINE [Concomitant]
  7. CLOPIDOGREL BISULFATE [Concomitant]
  8. FLUCONAZOLE [Concomitant]
  9. LOPRAZOLAM [Concomitant]
  10. LOSARTAN POTASSIUM [Concomitant]
  11. PREDNISONE [Concomitant]

REACTIONS (2)
  - DRUG INTERACTION [None]
  - RHABDOMYOLYSIS [None]
